FAERS Safety Report 6091731-9 (Version None)
Quarter: 2009Q1

REPORT INFORMATION
  Report Type: 
  Country: None (occurrence: None)
  Receive Date: 20090225
  Receipt Date: 20080501
  Transmission Date: 20090719
  Serious: No
  Sender: FDA-Public Use
  Company Number: A0725839A

PATIENT
  Age: 49 Year
  Sex: Female

DRUGS (1)
  1. VALTREX [Suspect]
     Dosage: 1G THREE TIMES PER DAY
     Route: 048
     Dates: start: 20080415, end: 20080430

REACTIONS (3)
  - HEADACHE [None]
  - NASOPHARYNGITIS [None]
  - OROPHARYNGEAL PAIN [None]
